FAERS Safety Report 4633775-7 (Version None)
Quarter: 2005Q1

REPORT INFORMATION
  Report Type: 
  Country: None (occurrence: None)
  Receive Date: 20050325
  Receipt Date: 20041211
  Transmission Date: 20050727
  Serious: No
  Sender: FDA-Public Use
  Company Number: USA041285978

PATIENT
  Age: 90 Year
  Sex: Female

DRUGS (1)
  1. FORTEO [Suspect]
     Dates: start: 20040701, end: 20041209

REACTIONS (6)
  - ANXIETY [None]
  - ARTHRALGIA [None]
  - DIFFICULTY IN WALKING [None]
  - FEELING ABNORMAL [None]
  - FEELING HOT [None]
  - PAIN [None]
